FAERS Safety Report 7914755-2 (Version None)
Quarter: 2011Q4

REPORT INFORMATION
  Report Type: 
  Country: None (occurrence: None)
  Receive Date: 20111115
  Receipt Date: 20111111
  Transmission Date: 20120403
  Serious: Yes (Death, Hospitalization, Other)
  Sender: FDA-Public Use
  Company Number: PHHY2011AR099913

PATIENT
  Sex: Male

DRUGS (1)
  1. ONBREZ [Suspect]
     Indication: LUNG DISORDER
     Dosage: 150 UG, UNK
     Dates: start: 20110301, end: 20110401

REACTIONS (2)
  - LUNG NEOPLASM [None]
  - PLEURAL EFFUSION [None]
